FAERS Safety Report 4764074-0 (Version None)
Quarter: 2005Q3

REPORT INFORMATION
  Report Type: 
  Country: None (occurrence: None)
  Receive Date: 20050908
  Receipt Date: 20050729
  Transmission Date: 20060218
  Serious: Yes (Other)
  Sender: FDA-Public Use
  Company Number: US-MERCK-0508USA00692

PATIENT
  Age: 64 Year
  Sex: Female
  Weight: 100 kg

DRUGS (8)
  1. VIOXX [Suspect]
     Indication: PAIN IN EXTREMITY
     Route: 048
     Dates: start: 20001201, end: 20040801
  2. VIOXX [Suspect]
     Indication: ARTHRALGIA
     Route: 048
     Dates: start: 20001201, end: 20040801
  3. HYZAAR [Concomitant]
     Route: 048
  4. LIPITOR [Concomitant]
     Route: 065
  5. ZOLOFT [Concomitant]
     Route: 065
  6. MIACALCIN [Concomitant]
     Route: 065
  7. SYNTHROID [Concomitant]
     Route: 065
  8. FLEXERIL [Concomitant]
     Route: 048

REACTIONS (1)
  - CEREBROVASCULAR ACCIDENT [None]
